FAERS Safety Report 7463035-0 (Version None)
Quarter: 2011Q2

REPORT INFORMATION
  Report Type: 
  Country: None (occurrence: None)
  Receive Date: 20110506
  Receipt Date: 20110405
  Transmission Date: 20111010
  Serious: Yes (Other)
  Sender: FDA-Public Use
  Company Number: US-BAYER-201033388NA

PATIENT
  Age: 37 Year
  Sex: Female
  Weight: 92.517 kg

DRUGS (16)
  1. YASMIN [Suspect]
     Indication: AFFECT LABILITY
  2. DROSPIRENONE AND ETHINYL ESTRADIOL [Suspect]
     Indication: AFFECT LABILITY
  3. DROSPIRENONE AND ETHINYL ESTRADIOL [Suspect]
     Indication: CONTRACEPTION
  4. LEVOTHYROXINE SODIUM [Concomitant]
     Route: 048
  5. YASMIN [Suspect]
     Indication: CONTRACEPTION
  6. DEPAKOTE [Concomitant]
     Dosage: 250 MG, UNK
     Route: 048
  7. NEXIUM [Concomitant]
  8. OXYCODONE [Concomitant]
     Indication: PAIN
     Dosage: UNK UNK, PRN
  9. SYNTHROID [Concomitant]
  10. LAMOTRIGINE [Concomitant]
     Dosage: 25 MG, UNK
     Route: 048
  11. YASMIN [Suspect]
     Indication: MENSTRUATION IRREGULAR
     Route: 048
     Dates: start: 20070401, end: 20071101
  12. DROSPIRENONE AND ETHINYL ESTRADIOL [Suspect]
     Indication: MENSTRUATION IRREGULAR
     Dosage: UNK
     Dates: start: 20080701, end: 20081101
  13. ZOLOFT [Concomitant]
     Dosage: 100 MG, QD
     Route: 048
  14. ABILIFY [Concomitant]
     Dosage: 5 MG, QD
     Route: 048
  15. LEVOXYL [Concomitant]
     Indication: HYPOTHYROIDISM
     Dosage: 200 MCG/24HR, QD
     Route: 048
  16. MULTI-VITAMIN [Concomitant]

REACTIONS (2)
  - GALLBLADDER INJURY [None]
  - CHOLECYSTITIS [None]
